FAERS Safety Report 17405947 (Version 3)
Quarter: 2020Q2

REPORT INFORMATION
  Report Type: Spontaneous
  Country: US (occurrence: US)
  Receive Date: 20200212
  Receipt Date: 20200610
  Transmission Date: 20200713
  Serious: No
  Sender: FDA-Public Use
  Company Number: US-BIOGEN-2019BI00802508

PATIENT
  Sex: Female
  Weight: 77.18 kg

DRUGS (8)
  1. TECFIDERA [Suspect]
     Active Substance: DIMETHYL FUMARATE
     Route: 065
  2. LEVOTHYROXINE. [Concomitant]
     Active Substance: LEVOTHYROXINE
     Route: 065
  3. TECFIDERA [Suspect]
     Active Substance: DIMETHYL FUMARATE
     Indication: MULTIPLE SCLEROSIS
     Dosage: STARTED IN THE EVENING
     Route: 065
     Dates: start: 20191017
  4. ARMODAFINIL. [Concomitant]
     Active Substance: ARMODAFINIL
     Route: 065
  5. LIOTHYRONIN [Concomitant]
     Active Substance: LIOTHYRONINE SODIUM
     Route: 065
  6. CBD KINGS [Concomitant]
     Route: 065
  7. TECFIDERA [Suspect]
     Active Substance: DIMETHYL FUMARATE
     Dosage: STARTED ON DAY 8
     Route: 065
  8. TECFIDERA [Suspect]
     Active Substance: DIMETHYL FUMARATE
     Route: 065
     Dates: end: 20200515

REACTIONS (13)
  - Abdominal discomfort [Unknown]
  - Lymphocyte count decreased [Unknown]
  - Hypoaesthesia [Unknown]
  - Lymphocyte percentage decreased [Unknown]
  - Product dose omission [Unknown]
  - Neutrophil percentage increased [Unknown]
  - Pain in extremity [Unknown]
  - Flushing [Unknown]
  - Diarrhoea [Unknown]
  - White blood cell count decreased [Unknown]
  - Paraesthesia [Unknown]
  - Hepatic enzyme increased [Not Recovered/Not Resolved]
  - Abdominal pain upper [Recovered/Resolved]
